FAERS Safety Report 7372023-4 (Version None)
Quarter: 2011Q1

REPORT INFORMATION
  Report Type: 
  Country: None (occurrence: None)
  Receive Date: 20110324
  Receipt Date: 20101018
  Transmission Date: 20110831
  Serious: Yes (Hospitalization, Other)
  Sender: FDA-Public Use
  Company Number: US-BAYER-200935586NA

PATIENT
  Sex: Female
  Weight: 77.273 kg

DRUGS (16)
  1. FERROUS SULFATE TAB [Concomitant]
  2. CELLCEPT [Concomitant]
  3. PREDNISONE [Concomitant]
     Route: 048
  4. RENAGEL [Concomitant]
     Dosage: 3 WITH MEALS
  5. VALCYTE [Concomitant]
     Route: 048
  6. ROCEPHIN [Concomitant]
     Dates: start: 20081001, end: 20090701
  7. LABETALOL [Concomitant]
     Dates: start: 20081001, end: 20081201
  8. LEVAQUIN [Concomitant]
     Dates: start: 20081001, end: 20090701
  9. YAZ [Suspect]
     Indication: ORAL CONTRACEPTION
     Route: 048
     Dates: start: 20040701, end: 20081001
  10. ALEVE [Concomitant]
     Dosage: 2000 MG (DAILY DOSE), BID,
     Dates: start: 20050101, end: 20080101
  11. YASMIN [Suspect]
     Indication: ORAL CONTRACEPTION
     Route: 048
     Dates: start: 20040701, end: 20081001
  12. UNCODEABLE ^UNCLASSIFIABLE^ [Concomitant]
  13. CALCIUM ACETATE [Concomitant]
  14. CIPRO [Concomitant]
     Dates: start: 20081001, end: 20090701
  15. PROTONIX [Concomitant]
  16. PROGRAF [Concomitant]
     Route: 048

REACTIONS (13)
  - RENAL FAILURE CHRONIC [None]
  - PALPITATIONS [None]
  - HYPERTENSION [None]
  - SYNCOPE [None]
  - HEADACHE [None]
  - AZOTAEMIA [None]
  - NAUSEA [None]
  - NORMOCHROMIC NORMOCYTIC ANAEMIA [None]
  - ECCHYMOSIS [None]
  - THROMBOSIS [None]
  - PAIN [None]
  - GLOMERULAR FILTRATION RATE DECREASED [None]
  - SUPRAVENTRICULAR EXTRASYSTOLES [None]
